FAERS Safety Report 9353443 (Version 1)
Quarter: 2013Q2

REPORT INFORMATION
  Report Type: Spontaneous
  Country: KR (occurrence: KR)
  Receive Date: 20130618
  Receipt Date: 20130618
  Transmission Date: 20140414
  Serious: No
  Sender: FDA-Public Use
  Company Number: KR-JNJFOC-20130601390

PATIENT
  Age: 43 Year
  Sex: Male

DRUGS (2)
  1. DUROGESIC D-TRANS [Suspect]
     Indication: PAIN
     Route: 062
     Dates: start: 20130603
  2. DUROGESIC D-TRANS [Suspect]
     Indication: PAIN
     Route: 062
     Dates: start: 20130604

REACTIONS (6)
  - Nausea [Not Recovered/Not Resolved]
  - Vomiting [Not Recovered/Not Resolved]
  - Dizziness [Not Recovered/Not Resolved]
  - Palpitations [Not Recovered/Not Resolved]
  - Drug prescribing error [Unknown]
  - Wrong technique in drug usage process [Unknown]
